FAERS Safety Report 7133431-X (Version None)
Quarter: 2010Q4

REPORT INFORMATION
  Report Type: 
  Country: None (occurrence: None)
  Receive Date: 20101202
  Receipt Date: 20101129
  Transmission Date: 20110411
  Serious: Yes (Hospitalization)
  Sender: FDA-Public Use
  Company Number: PHHO2010GB17985

PATIENT
  Sex: Male
  Weight: 101 kg

DRUGS (3)
  1. ZOLEDRONATE T29581+SOLINJ+BM [Suspect]
     Indication: METASTASES TO BONE
     Dosage: 4MG
     Route: 042
     Dates: start: 20080105
  2. HORMONES [Concomitant]
  3. DOCETAXEL [Concomitant]
     Dosage: 150MG
     Route: 042
     Dates: start: 20080105

REACTIONS (6)
  - INFECTION [None]
  - OSTEONECROSIS OF JAW [None]
  - PAIN [None]
  - TOOTH ABSCESS [None]
  - TOOTH DISORDER [None]
  - TOOTH EXTRACTION [None]
